FAERS Safety Report 8576122-0 (Version None)
Quarter: 2012Q3

REPORT INFORMATION
  Report Type: 
  Country: None (occurrence: None)
  Receive Date: 20120807
  Receipt Date: 20120731
  Transmission Date: 20120928
  Serious: Yes (Other)
  Sender: FDA-Public Use
  Company Number: CA-ABBOTT-12P-028-0963102-00

PATIENT
  Sex: Male

DRUGS (2)
  1. HUMIRA [Suspect]
     Indication: CROHN'S DISEASE
     Route: 058
     Dates: start: 20100313, end: 20110801
  2. ENTOCORT EC [Concomitant]
     Indication: CROHN'S DISEASE
     Route: 048

REACTIONS (1)
  - SMALL INTESTINE ULCER [None]
